FAERS Safety Report 5409681-7 (Version None)
Quarter: 2007Q3

REPORT INFORMATION
  Report Type: 
  Country: None (occurrence: None)
  Receive Date: 20070809
  Receipt Date: 20070803
  Transmission Date: 20080115
  Serious: Yes (Hospitalization, Other)
  Sender: FDA-Public Use
  Company Number: FR-ELI_LILLY_AND_COMPANY-FR200707000623

PATIENT
  Age: 52 Year
  Sex: Female
  Weight: 95 kg

DRUGS (14)
  1. FORTEO [Suspect]
     Indication: OSTEOPOROSIS
     Dosage: 20 UG, DAILY (1/D)
     Route: 058
     Dates: start: 20061208, end: 20070611
  2. FORTEO [Suspect]
     Dosage: 20 UG, DAILY (1/D)
     Route: 058
     Dates: start: 20070623
  3. SKENAN [Concomitant]
     Indication: PAIN IN EXTREMITY
     Dosage: 100 MG, 2/D
  4. CLONAZEPAM [Concomitant]
     Dosage: 2 D/F, EACH EVENING
     Route: 048
  5. SEROPLEX [Concomitant]
     Dosage: 20 MG, DAILY (1/D)
  6. TRILEPTAL [Concomitant]
     Dosage: 300 MG, 3/D
     Route: 048
  7. CRESTOR [Concomitant]
     Dosage: 10 MG, DAILY (1/D)
     Route: 048
  8. NEXIUM [Concomitant]
     Dosage: 20 MG, DAILY (1/D)
  9. BUFLOMEDIL [Concomitant]
     Dosage: 1 D/F, 2/D
     Route: 048
  10. ATACAND [Concomitant]
     Indication: HYPERTENSION
     Dosage: 8 MG, DAILY (1/D)
     Route: 048
  11. LEVOTHYROXINE SODIUM [Concomitant]
     Indication: HYPOTHYROIDISM
     Dosage: 1 D/F, DAILY (1/D)
     Route: 048
  12. ACTISKENAN [Concomitant]
     Dosage: 6 D/F, DAILY (1/D)
     Route: 048
  13. TAHOR [Concomitant]
     Indication: DYSLIPIDAEMIA
     Dosage: 20 MG, DAILY (1/D)
     Route: 048
  14. ZOLOFT [Concomitant]
     Indication: DEPRESSION
     Dosage: 4 D/F, DAILY (1/D)
     Route: 048

REACTIONS (7)
  - ANALGESIC DRUG LEVEL ABOVE THERAPEUTIC [None]
  - DIARRHOEA [None]
  - EAR PAIN [None]
  - HYPERCAPNIC ENCEPHALOPATHY [None]
  - RENAL FAILURE [None]
  - RESPIRATORY DISTRESS [None]
  - SUPERINFECTION [None]
